FAERS Safety Report 23516603 (Version 2)
Quarter: 2024Q1

REPORT INFORMATION
  Report Type: Spontaneous
  Country: PT (occurrence: PT)
  Receive Date: 20240213
  Receipt Date: 20240308
  Transmission Date: 20240410
  Serious: Yes (Other)
  Sender: FDA-Public Use
  Company Number: PT-AMGEN-PRTSP2024026593

PATIENT
  Age: 75 Year
  Sex: Female

DRUGS (5)
  1. CARFILZOMIB [Suspect]
     Active Substance: CARFILZOMIB
     Indication: Plasma cell myeloma
     Dosage: UNK
     Route: 065
     Dates: start: 202212, end: 20230314
  2. ECULIZUMAB [Concomitant]
     Active Substance: ECULIZUMAB
     Dosage: 900 MILLIGRAM, Q4WK
  3. ECULIZUMAB [Concomitant]
     Active Substance: ECULIZUMAB
     Dosage: 1200 MILLIGRAM, Q2WK
  4. AMOXICILLIN [Concomitant]
     Active Substance: AMOXICILLIN
     Indication: Prophylaxis
     Dosage: UNK, FOR 2 WEEKS
  5. DEXAMETHASONE [Concomitant]
     Active Substance: DEXAMETHASONE
     Indication: Plasma cell myeloma
     Dosage: UNK

REACTIONS (5)
  - COVID-19 [Unknown]
  - Thrombotic microangiopathy [Recovering/Resolving]
  - Bacteraemia [Recovering/Resolving]
  - Anaemia [Recovering/Resolving]
  - Device related infection [Recovering/Resolving]
